FAERS Safety Report 4872943-6 (Version None)
Quarter: 2006Q1

REPORT INFORMATION
  Report Type: 
  Country: None (occurrence: None)
  Receive Date: 20060105
  Receipt Date: 20050329
  Transmission Date: 20060701
  Serious: Yes (Hospitalization, Other)
  Sender: FDA-Public Use
  Company Number: US-BRISTOL-MYERS SQUIBB COMPANY-12914982

PATIENT
  Age: 44 Year
  Sex: Male

DRUGS (1)
  1. SERZONE [Suspect]
     Dates: start: 19990111, end: 20021105

REACTIONS (4)
  - FATIGUE [None]
  - HEPATIC CIRRHOSIS [None]
  - JAUNDICE [None]
  - PROTHROMBIN LEVEL DECREASED [None]
